FAERS Safety Report 10567165 (Version 1)
Quarter: 2014Q4

REPORT INFORMATION
  Report Type: Spontaneous
  Country: US (occurrence: US)
  Receive Date: 20141105
  Receipt Date: 20141105
  Transmission Date: 20150529
  Serious: Yes (Death, Other)
  Sender: FDA-Public Use
  Company Number: US-GILEAD-2014-0121456

PATIENT
  Age: 66 Year
  Sex: Female

DRUGS (11)
  1. LETAIRIS [Suspect]
     Active Substance: AMBRISENTAN
     Indication: PULMONARY HYPERTENSION
     Route: 065
     Dates: start: 20130430, end: 20141029
  2. REMODULIN [Concomitant]
     Active Substance: TREPROSTINIL
  3. TRAMADOL [Concomitant]
     Active Substance: TRAMADOL
  4. SPIRONOLACTONE. [Concomitant]
     Active Substance: SPIRONOLACTONE
  5. BABY ASPIRIN [Concomitant]
     Active Substance: ASPIRIN
  6. VITAMIN D [Concomitant]
     Active Substance: CHOLECALCIFEROL
  7. METOCLOPRAMIDE. [Concomitant]
     Active Substance: METOCLOPRAMIDE
  8. DIGOXIN. [Concomitant]
     Active Substance: DIGOXIN
  9. ADEMPAS [Concomitant]
     Active Substance: RIOCIGUAT
  10. LOSARTAN [Concomitant]
     Active Substance: LOSARTAN
  11. LIPITOR [Concomitant]
     Active Substance: ATORVASTATIN CALCIUM

REACTIONS (1)
  - Renal failure [Fatal]
